FAERS Safety Report 9238541 (Version 1)
Quarter: 2013Q2

REPORT INFORMATION
  Report Type: Spontaneous
  Country: US (occurrence: US)
  Receive Date: 20130418
  Receipt Date: 20130418
  Transmission Date: 20140414
  Serious: No
  Sender: FDA-Public Use
  Company Number: US-BAYER-2013-045684

PATIENT
  Age: 16 Year
  Sex: Female
  Weight: 57 kg

DRUGS (2)
  1. ALEVE CAPLET [Suspect]
     Indication: HEADACHE
     Dosage: 2 DF, ONCE
     Route: 048
     Dates: start: 20130408, end: 20130408
  2. FLINTSTONES [Concomitant]

REACTIONS (6)
  - Eyelid oedema [Recovered/Resolved]
  - Throat irritation [Recovered/Resolved]
  - Lip pruritus [Recovered/Resolved]
  - Lip swelling [Recovered/Resolved]
  - Erythema of eyelid [Recovered/Resolved]
  - Throat irritation [Recovered/Resolved]
